FAERS Safety Report 16196284 (Version 7)
Quarter: 2020Q2

REPORT INFORMATION
  Report Type: Report from Study
  Country: US (occurrence: US)
  Receive Date: 20190415
  Receipt Date: 20200506
  Transmission Date: 20200713
  Serious: Yes (Other)
  Sender: FDA-Public Use
  Company Number: US-ROCHE-2271404

PATIENT

DRUGS (2)
  1. RITUXIMAB. [Suspect]
     Active Substance: RITUXIMAB
     Indication: NON-HODGKIN^S LYMPHOMA UNSPECIFIED HISTOLOGY INDOLENT
     Dosage: DAYS 1, 8, 15, AND 22 OF CYCLE 1 AND DAY 1 OF CYCLES 2 TO 5 EVERY 28 DAYS
     Route: 042
  2. LENALIDOMIDE [Suspect]
     Active Substance: LENALIDOMIDE
     Indication: NON-HODGKIN^S LYMPHOMA UNSPECIFIED HISTOLOGY INDOLENT
     Dosage: DAY 1-21/28 FOR 12 CYCLES
     Route: 048

REACTIONS (31)
  - Pleural effusion [Unknown]
  - Decreased appetite [Unknown]
  - Rash maculo-papular [Unknown]
  - Carcinoid tumour of the gastrointestinal tract [Unknown]
  - Fatigue [Unknown]
  - Neutropenia [Unknown]
  - Leukopenia [Unknown]
  - Lymphocyte count decreased [Unknown]
  - Pneumonia [Unknown]
  - Asthenia [Unknown]
  - Pruritus [Unknown]
  - Dyspnoea [Unknown]
  - Rash [Unknown]
  - Tumour flare [Unknown]
  - Influenza [Unknown]
  - White blood cell count decreased [Unknown]
  - Febrile neutropenia [Unknown]
  - Pulmonary embolism [Unknown]
  - Sepsis [Unknown]
  - Pyrexia [Unknown]
  - Cough [Unknown]
  - Nausea [Unknown]
  - Anaemia [Unknown]
  - Headache [Unknown]
  - Infusion related reaction [Unknown]
  - Abdominal pain [Unknown]
  - Diarrhoea [Unknown]
  - Upper respiratory tract infection [Unknown]
  - Thrombocytopenia [Unknown]
  - Muscle spasms [Unknown]
  - Alanine aminotransferase increased [Unknown]
